FAERS Safety Report 20852659 (Version 1)
Quarter: 2022Q2

REPORT INFORMATION
  Report Type: Spontaneous
  Country: US (occurrence: None)
  Receive Date: 20220519
  Receipt Date: 20220519
  Transmission Date: 20220721
  Serious: Yes (Death, Hospitalization)
  Sender: FDA-Public Use
  Company Number: None

PATIENT
  Age: 40 Year
  Sex: Male
  Weight: 123.4 kg

DRUGS (4)
  1. MERCAPTOPURINE [Suspect]
     Active Substance: MERCAPTOPURINE
     Dates: end: 20211210
  2. METHOTREXATE [Suspect]
     Active Substance: METHOTREXATE
     Dates: end: 20211109
  3. PREDNISONE [Suspect]
     Active Substance: PREDNISONE
     Dates: end: 20211113
  4. VINCRISTINE SULFATE [Suspect]
     Active Substance: VINCRISTINE SULFATE
     Dates: end: 20211109

REACTIONS (14)
  - Acute respiratory failure [None]
  - COVID-19 pneumonia [None]
  - Abdominal distension [None]
  - Staphylococcal bacteraemia [None]
  - Acute respiratory distress syndrome [None]
  - Pulmonary mass [None]
  - Pneumonia staphylococcal [None]
  - Pneumothorax [None]
  - Mediastinal shift [None]
  - Platelet count decreased [None]
  - Deep vein thrombosis [None]
  - Hypotension [None]
  - Cardio-respiratory arrest [None]
  - General physical health deterioration [None]

NARRATIVE: CASE EVENT DATE: 20211213
